FAERS Safety Report 7985267-5 (Version None)
Quarter: 2011Q4

REPORT INFORMATION
  Report Type: 
  Country: None (occurrence: None)
  Receive Date: 20111216
  Receipt Date: 20111208
  Transmission Date: 20120403
  Serious: Yes (Hospitalization)
  Sender: FDA-Public Use
  Company Number: US-UCBSA-047477

PATIENT
  Age: 62 Year
  Sex: Female
  Weight: 122.5 kg

DRUGS (6)
  1. VITAMIN D [Concomitant]
     Indication: CROHN'S DISEASE
  2. CIMZIA [Suspect]
     Indication: CROHN'S DISEASE
     Dosage: ONLY TWO DOSES WERE RECEIVED AND THEN DISCONTINUED
     Route: 058
     Dates: start: 20110624, end: 20110701
  3. PREDNISONE TAB [Concomitant]
     Indication: CROHN'S DISEASE
     Dates: start: 20110323
  4. CORAL CALCIUM [Concomitant]
     Indication: CROHN'S DISEASE
  5. MULTI-VITAMIN [Concomitant]
     Indication: CROHN'S DISEASE
  6. IBUPROFEN [Concomitant]
     Indication: CROHN'S DISEASE

REACTIONS (2)
  - CLOSTRIDIUM DIFFICILE COLITIS [None]
  - WHITE BLOOD CELL COUNT INCREASED [None]
